FAERS Safety Report 6282239-6 (Version None)
Quarter: 2009Q3

REPORT INFORMATION
  Report Type: 
  Country: None (occurrence: None)
  Receive Date: 20090724
  Receipt Date: 20090717
  Transmission Date: 20100115
  Serious: Yes (Other)
  Sender: FDA-Public Use
  Company Number: CA-JNJCH-2009019564

PATIENT
  Sex: Female

DRUGS (1)
  1. LISTERINE COOL CITRUS [Suspect]
     Indication: DRUG USE FOR UNKNOWN INDICATION
     Dosage: TEXT:UNSPECIFIED
     Route: 048
     Dates: start: 20090717, end: 20090717

REACTIONS (2)
  - PRODUCT CONTAMINATION [None]
  - UNEVALUABLE EVENT [None]
